FAERS Safety Report 16742638 (Version 1)
Quarter: 2019Q3

REPORT INFORMATION
  Report Type: Other
  Country: None (occurrence: US)
  Receive Date: 20190826
  Receipt Date: 20190826
  Transmission Date: 20191005
  Serious: Yes (Other)
  Sender: FDA-Public Use
  Company Number: 01ATLAS269566

PATIENT
  Sex: Male

DRUGS (1)
  1. BLT TOPICAL CREAM (BENZOCAINE, LIDOCAINE, TETRACAINE) [Suspect]
     Active Substance: BENZOCAINE\LIDOCAINE HYDROCHLORIDE\TETRACAINE
     Indication: LOCAL ANAESTHESIA
     Route: 061
     Dates: start: 20190516, end: 20190522

REACTIONS (1)
  - Rash [Recovered/Resolved]

NARRATIVE: CASE EVENT DATE: 20190516
